FAERS Safety Report 6308670-8 (Version None)
Quarter: 2009Q3

REPORT INFORMATION
  Report Type: 
  Country: None (occurrence: None)
  Receive Date: 20090813
  Receipt Date: 20090805
  Transmission Date: 20100115
  Serious: Yes (Hospitalization)
  Sender: FDA-Public Use
  Company Number: FR-CELGENEUS-056-20785-09061154

PATIENT
  Sex: Female
  Weight: 60 kg

DRUGS (1)
  1. THALIDOMIDE [Suspect]
     Route: 048
     Dates: start: 20090513, end: 20090531

REACTIONS (2)
  - CHEST PAIN [None]
  - HYPOTENSION [None]
